FAERS Safety Report 24690313 (Version 1)
Quarter: 2024Q4

REPORT INFORMATION
  Report Type: Other
  Country: CA (occurrence: CA)
  Receive Date: 20241203
  Receipt Date: 20241203
  Transmission Date: 20250115
  Serious: Yes (Death, Other)
  Sender: APOTEX
  Company Number: CA-APOTEX-2024AP000895

PATIENT
  Sex: Male

DRUGS (2)
  1. POMALIDOMIDE [Suspect]
     Active Substance: POMALIDOMIDE
     Indication: Plasma cell myeloma
     Dosage: 4 MILLIGRAM, QD
     Route: 048
     Dates: start: 202312
  2. POMALIDOMIDE [Suspect]
     Active Substance: POMALIDOMIDE
     Dosage: 2 MILLIGRAM, QD
     Route: 048

REACTIONS (2)
  - Plasma cell myeloma [Fatal]
  - Malaise [Unknown]

NARRATIVE: CASE EVENT DATE: 20240101
